FAERS Safety Report 5603404-4 (Version None)
Quarter: 2008Q1

REPORT INFORMATION
  Report Type: 
  Country: None (occurrence: None)
  Receive Date: 20080122
  Receipt Date: 20080103
  Transmission Date: 20080703
  Serious: Yes (Other)
  Sender: FDA-Public Use
  Company Number: BR-1163327

PATIENT
  Age: 73 Year
  Sex: Female

DRUGS (2)
  1. AZOPT (BRINZOLAMIDE) 1% SUSPENSION LOT # 30926 EYE DROPS, SUSPENSION [Suspect]
     Indication: GLAUCOMA
     Dosage: 1 GTT OU ONCE
     Route: 047
     Dates: start: 20070615, end: 20070615
  2. BALCOR (DILTIAZEM HYDROCHLORIDE) [Concomitant]

REACTIONS (7)
  - BRONCHIAL OEDEMA [None]
  - DYSPNOEA [None]
  - EYE OEDEMA [None]
  - HYPERSENSITIVITY [None]
  - LOSS OF CONSCIOUSNESS [None]
  - SKIN DISCOLOURATION [None]
  - TREMOR [None]
